FAERS Safety Report 8474644-4 (Version None)
Quarter: 2012Q2

REPORT INFORMATION
  Report Type: 
  Country: None (occurrence: None)
  Receive Date: 20120621
  Receipt Date: 20120611
  Transmission Date: 20120825
  Serious: Yes (Life-Threatening, Hospitalization)
  Sender: FDA-Public Use
  Company Number: 2012PV000025

PATIENT
  Age: 63 Year
  Sex: Female

DRUGS (3)
  1. DENOSUMAB [Concomitant]
  2. ABRAXANE [Concomitant]
  3. DEPOCYT [Suspect]
     Indication: METASTASES TO MENINGES
     Dosage: 50 MG;1X;INTH
     Route: 037
     Dates: start: 20120503, end: 20120503

REACTIONS (4)
  - ASTHENIA [None]
  - HYPOKALAEMIA [None]
  - GENERAL PHYSICAL HEALTH DETERIORATION [None]
  - C-REACTIVE PROTEIN DECREASED [None]
